FAERS Safety Report 6176991-8 (Version None)
Quarter: 2009Q2

REPORT INFORMATION
  Report Type: 
  Country: None (occurrence: None)
  Receive Date: 20090501
  Receipt Date: 20090212
  Transmission Date: 20091009
  Serious: Yes (Other)
  Sender: FDA-Public Use
  Company Number: US-ALEXION-A200900111

PATIENT
  Sex: Female

DRUGS (9)
  1. SOLIRIS [Suspect]
     Indication: PAROXYSMAL NOCTURNAL HAEMOGLOBINURIA
     Dosage: 600 MG, QW
     Route: 042
     Dates: start: 20070720
  2. SOLIRIS [Suspect]
     Dosage: 900 MG, Q2W
     Route: 042
     Dates: start: 20070817
  3. FOLIC ACID [Concomitant]
     Dosage: UNK
     Route: 048
  4. FOSAMAX PLUS D [Concomitant]
     Dosage: UNK
     Route: 048
  5. AMBIEN [Concomitant]
     Indication: SLEEP DISORDER
     Dosage: UNK
     Route: 048
  6. LASIX [Concomitant]
     Indication: WEIGHT INCREASED
     Dosage: 40 MG, UNK
     Route: 048
  7. METRONIDAZOLE [Concomitant]
     Indication: NASOPHARYNGITIS
     Dosage: UNK
     Route: 048
  8. METRONIDAZOLE [Concomitant]
     Indication: INFECTION
  9. MICRO-K [Concomitant]
     Indication: ELECTROLYTE SUBSTITUTION THERAPY
     Dosage: UNK
     Route: 048

REACTIONS (3)
  - ABORTION SPONTANEOUS [None]
  - DRUG EXPOSURE DURING PREGNANCY [None]
  - SINUSITIS [None]
